FAERS Safety Report 4518018-7 (Version None)
Quarter: 2004Q4

REPORT INFORMATION
  Report Type: 
  Country: None (occurrence: None)
  Receive Date: 20041130
  Receipt Date: 20041117
  Transmission Date: 20050328
  Serious: Yes (Hospitalization, Other)
  Sender: FDA-Public Use
  Company Number: 2004095223

PATIENT
  Age: 23 Year
  Sex: Female

DRUGS (7)
  1. PHENYTOIN [Suspect]
     Indication: ILL-DEFINED DISORDER
  2. PREDNISONE TABLET (PREDNISONE) (PREDNISONE) [Suspect]
     Indication: ILL-DEFINED DISORDER
  3. LAMOTRIGINE [Suspect]
     Indication: BIPOLAR DISORDER
     Dosage: 200 MG (1 D)
     Dates: start: 20031126, end: 20040115
  4. ALL OTHER THERAPEUTIC PRODUCTS (ALL OTHER THERAPEUTIC PRODUCTS) [Suspect]
     Indication: ILL-DEFINED DISORDER
  5. VENLAFAXINE HCL [Concomitant]
  6. IBUPROFEN [Concomitant]
  7. CIPROFLOXACIN [Concomitant]

REACTIONS (27)
  - ANOREXIA [None]
  - BLOOD ALBUMIN DECREASED [None]
  - BLOOD CALCIUM INCREASED [None]
  - BLOOD SODIUM DECREASED [None]
  - CANDIDIASIS [None]
  - COUGH [None]
  - DELIRIUM [None]
  - DIARRHOEA [None]
  - ENCEPHALOPATHY [None]
  - EPIDERMAL NAEVUS [None]
  - HEPATITIS GRANULOMATOUS [None]
  - HEPATOMEGALY [None]
  - HEPATOTOXICITY [None]
  - INFLUENZA LIKE ILLNESS [None]
  - LYMPHADENOPATHY [None]
  - MYALGIA [None]
  - PLATELET COUNT INCREASED [None]
  - PROTHROMBIN TIME PROLONGED [None]
  - PRURITUS [None]
  - PYREXIA [None]
  - RASH ERYTHEMATOUS [None]
  - RASH MACULO-PAPULAR [None]
  - RASH PAPULOSQUAMOUS [None]
  - SKIN DESQUAMATION [None]
  - VISUAL DISTURBANCE [None]
  - WEIGHT DECREASED [None]
  - WHITE BLOOD CELL COUNT INCREASED [None]
